FAERS Safety Report 8166905-3 (Version None)
Quarter: 2012Q1

REPORT INFORMATION
  Report Type: 
  Country: None (occurrence: None)
  Receive Date: 20120227
  Receipt Date: 20120216
  Transmission Date: 20120608
  Serious: Yes (Other)
  Sender: FDA-Public Use
  Company Number: US-BAYER-2011-114291

PATIENT
  Age: 43 Year
  Sex: Female
  Weight: 61.224 kg

DRUGS (6)
  1. YASMIN [Suspect]
     Indication: ACNE
     Dosage: UNK
     Dates: start: 20050101, end: 20080101
  2. YAZ [Suspect]
     Indication: ACNE
  3. DROSPIRENONE AND ETHINYL ESTRADIOL [Suspect]
     Indication: ACNE
  4. LEVOTHYROXINE SODIUM [Concomitant]
     Dosage: 0.075 MG, UNK
  5. PHENAZOPYRIDINE HCL TAB [Concomitant]
     Dosage: 100 MG, UNK
  6. YASMIN [Suspect]
     Indication: PREMENSTRUAL SYNDROME

REACTIONS (4)
  - INJURY [None]
  - MENTAL DISORDER [None]
  - DEEP VEIN THROMBOSIS [None]
  - PAIN [None]
